FAERS Safety Report 24346713 (Version 3)
Quarter: 2025Q4

REPORT INFORMATION
  Report Type: Spontaneous
  Country: CA (occurrence: CA)
  Receive Date: 20240921
  Receipt Date: 20251014
  Transmission Date: 20260118
  Serious: Yes (Hospitalization)
  Sender: CELLTRION
  Company Number: CA-CELLTRION INC.-2024CA022342

PATIENT

DRUGS (2)
  1. YUFLYMA [Suspect]
     Active Substance: ADALIMUMAB-AATY
     Indication: Hidradenitis
     Dosage: 40 MILLIGRAM, WEEKLY
     Route: 058
     Dates: start: 20240228
  2. YUFLYMA [Suspect]
     Active Substance: ADALIMUMAB-AATY
     Dosage: 80 MILLIGRAM, WEEKLY
     Route: 058

REACTIONS (3)
  - Hospitalisation [Unknown]
  - Intentional product use issue [Unknown]
  - Illness [Unknown]

NARRATIVE: CASE EVENT DATE: 20250101
